FAERS Safety Report 4486487-7 (Version None)
Quarter: 2004Q4

REPORT INFORMATION
  Report Type: 
  Country: None (occurrence: None)
  Receive Date: 20041021
  Receipt Date: 20041012
  Transmission Date: 20050328
  Serious: Yes (Other)
  Sender: FDA-Public Use
  Company Number: 200410536BYL

PATIENT
  Age: 60 Year
  Sex: Male

DRUGS (2)
  1. GLUCOBAY [Suspect]
     Indication: DIABETES MELLITUS
     Dosage: 300 MG, TOTAL DAILY, ORAL
     Route: 048
     Dates: start: 20040714, end: 20040831
  2. AMARYL [Concomitant]

REACTIONS (1)
  - ALOPECIA [None]
